FAERS Safety Report 21172681 (Version 1)
Quarter: 2022Q3

REPORT INFORMATION
  Report Type: Spontaneous
  Country: US (occurrence: US)
  Receive Date: 20220804
  Receipt Date: 20220804
  Transmission Date: 20221027
  Serious: Yes (Other)
  Sender: FDA-Public Use
  Company Number: US-BRISTOL-MYERS SQUIBB COMPANY-2022-080471

PATIENT
  Age: 74 Year
  Sex: Female

DRUGS (1)
  1. REVLIMID [Suspect]
     Active Substance: LENALIDOMIDE
     Indication: Plasma cell myeloma
     Dosage: DOSE : 1 (25 MG CAP);     FREQ : EVERY DAY X 14 DAYS
     Route: 048
     Dates: start: 20220322

REACTIONS (3)
  - Drug ineffective [Unknown]
  - Laboratory test abnormal [Unknown]
  - Off label use [Unknown]
